FAERS Safety Report 22761930 (Version 4)
Quarter: 2024Q2

REPORT INFORMATION
  Report Type: Report from Study
  Country: US (occurrence: US)
  Receive Date: 20230728
  Receipt Date: 20240612
  Transmission Date: 20240715
  Serious: Yes (Hospitalization, Other)
  Sender: FDA-Public Use
  Company Number: US-UCBSA-2022043986

PATIENT
  Sex: Male

DRUGS (5)
  1. CERTOLIZUMAB PEGOL [Suspect]
     Active Substance: CERTOLIZUMAB PEGOL
     Indication: Rheumatoid arthritis
     Dosage: 400 MILLIGRAM, EV 4 WEEKS
     Route: 058
     Dates: start: 20190101
  2. CERTOLIZUMAB PEGOL [Suspect]
     Active Substance: CERTOLIZUMAB PEGOL
     Dosage: 400 MILLIGRAM, EV 4 WEEKS
     Route: 058
     Dates: start: 2022
  3. CERTOLIZUMAB PEGOL [Suspect]
     Active Substance: CERTOLIZUMAB PEGOL
     Dosage: 400 MILLIGRAM, EV 4 WEEKS
     Route: 058
  4. OZEMPIC [Suspect]
     Active Substance: SEMAGLUTIDE
     Indication: Diabetes mellitus
     Dosage: 2MG/0.75ML PEN INJCTR
  5. ASPIRIN [Concomitant]
     Active Substance: ASPIRIN
     Indication: Product used for unknown indication
     Dosage: UNK

REACTIONS (19)
  - Nephrolithiasis [Not Recovered/Not Resolved]
  - Renal stone removal [Recovered/Resolved]
  - Pancreas infection [Unknown]
  - Stent placement [Not Recovered/Not Resolved]
  - Cerebral atrophy [Recovering/Resolving]
  - Transient ischaemic attack [Recovering/Resolving]
  - Loss of consciousness [Recovering/Resolving]
  - Abdominal pain upper [Not Recovered/Not Resolved]
  - Fungal infection [Recovered/Resolved]
  - Headache [Recovering/Resolving]
  - Blood pressure abnormal [Not Recovered/Not Resolved]
  - Dizziness [Not Recovered/Not Resolved]
  - Ill-defined disorder [Not Recovered/Not Resolved]
  - Nausea [Not Recovered/Not Resolved]
  - Balance disorder [Recovering/Resolving]
  - Musculoskeletal stiffness [Recovering/Resolving]
  - Nasopharyngitis [Unknown]
  - Product use issue [Unknown]
  - Product dose omission issue [Unknown]

NARRATIVE: CASE EVENT DATE: 20220101
